FAERS Safety Report 7991389-5 (Version None)
Quarter: 2011Q4

REPORT INFORMATION
  Report Type: 
  Country: None (occurrence: None)
  Receive Date: 20111219
  Receipt Date: 20111214
  Transmission Date: 20120403
  Serious: Yes (Other)
  Sender: FDA-Public Use
  Company Number: BR-PFIZER INC-2011305179

PATIENT
  Age: 58 Year
  Sex: Female

DRUGS (4)
  1. EFFEXOR XR [Concomitant]
     Dosage: 75MG, UNK
     Dates: start: 20101208
  2. ALPRAZOLAM [Concomitant]
  3. LIPITOR [Suspect]
     Indication: BLOOD CHOLESTEROL
     Dosage: 20 MG, 1X/DAY
     Route: 048
     Dates: start: 20091214
  4. ATENOLOL [Concomitant]

REACTIONS (2)
  - BLOOD CHOLESTEROL INCREASED [None]
  - CATARACT [None]
